FAERS Safety Report 5275801-0 (Version None)
Quarter: 2007Q1

REPORT INFORMATION
  Report Type: 
  Country: None (occurrence: None)
  Receive Date: 20070326
  Receipt Date: 20070322
  Transmission Date: 20070707
  Serious: Yes (Hospitalization)
  Sender: FDA-Public Use
  Company Number: FR-GLAXOSMITHKLINE-B0463208A

PATIENT
  Age: 84 Year
  Sex: Male

DRUGS (7)
  1. AUGMENTIN '125' [Suspect]
     Dosage: 1G TWICE PER DAY
     Route: 048
     Dates: start: 20070126, end: 20070128
  2. LOVENOX [Concomitant]
     Indication: PULMONARY EMBOLISM
     Route: 058
     Dates: start: 20070126, end: 20070128
  3. ZOFENOPRIL [Concomitant]
     Route: 048
     Dates: start: 20060615, end: 20070127
  4. KARDEGIC [Concomitant]
     Dosage: 160MG PER DAY
     Route: 048
     Dates: start: 20060615, end: 20070129
  5. ISKEDYL FORT [Concomitant]
     Dates: end: 20070127
  6. MODOPAR [Concomitant]
  7. DIGOXIN [Concomitant]

REACTIONS (2)
  - HEPATOSPLENOMEGALY [None]
  - THROMBOCYTOPENIA [None]
